FAERS Safety Report 8612880-4 (Version None)
Quarter: 2012Q3

REPORT INFORMATION
  Report Type: 
  Country: None (occurrence: None)
  Receive Date: 20120822
  Receipt Date: 20120301
  Transmission Date: 20120928
  Serious: No
  Sender: FDA-Public Use
  Company Number: US-ASTRAZENECA-2011SE46635

PATIENT
  Age: 72 Year
  Sex: Female

DRUGS (4)
  1. SEROQUEL [Suspect]
     Route: 048
  2. SYMBICORT [Suspect]
     Route: 055
  3. PAIN MEDICATIONS [Concomitant]
  4. CRESTOR [Suspect]
     Route: 048

REACTIONS (5)
  - VIRAL INFECTION [None]
  - DYSPHONIA [None]
  - NERVOUSNESS [None]
  - MALAISE [None]
  - PAIN [None]
